FAERS Safety Report 12970937 (Version 1)
Quarter: 2016Q4

REPORT INFORMATION
  Report Type: Spontaneous
  Country: US (occurrence: US)
  Receive Date: 20161123
  Receipt Date: 20161123
  Transmission Date: 20170207
  Serious: No
  Sender: FDA-Public Use
  Company Number: US-JAZZ-2016-US-019768

PATIENT
  Sex: Female

DRUGS (46)
  1. XYREM [Suspect]
     Active Substance: SODIUM OXYBATE
     Indication: CATAPLEXY
     Dosage: 3.75 G, BID
     Route: 048
     Dates: start: 200802, end: 2008
  2. VITAMIN D [Concomitant]
     Active Substance: CHOLECALCIFEROL
  3. CLONIDINE HCL [Concomitant]
     Active Substance: CLONIDINE HYDROCHLORIDE
  4. LISINOPRIL. [Concomitant]
     Active Substance: LISINOPRIL
  5. ALLERX DF [Concomitant]
  6. METOPROLOL SUCC CT [Concomitant]
  7. SENNALAX-S [Concomitant]
     Active Substance: DOCUSATE SODIUM\SENNOSIDES
  8. DIOVAN [Concomitant]
     Active Substance: VALSARTAN
  9. ZITHROMAX [Concomitant]
     Active Substance: AZITHROMYCIN DIHYDRATE
  10. XYREM [Suspect]
     Active Substance: SODIUM OXYBATE
     Indication: NARCOLEPSY
     Dosage: 3 G, BID
     Route: 048
     Dates: start: 200801, end: 2008
  11. DAYTRANA [Concomitant]
     Active Substance: METHYLPHENIDATE
  12. SYNTHROID [Concomitant]
     Active Substance: LEVOTHYROXINE SODIUM
  13. RELISTOR [Suspect]
     Active Substance: METHYLNALTREXONE BROMIDE
     Indication: PRODUCT USED FOR UNKNOWN INDICATION
  14. NORCO [Concomitant]
     Active Substance: ACETAMINOPHEN\HYDROCODONE BITARTRATE
  15. AMOXICILLIN. [Concomitant]
     Active Substance: AMOXICILLIN
  16. WELLBUTRIN [Concomitant]
     Active Substance: BUPROPION HYDROCHLORIDE
  17. SONATA                             /00061001/ [Concomitant]
  18. LEXAPRO [Concomitant]
     Active Substance: ESCITALOPRAM OXALATE
  19. MELOXICAM. [Concomitant]
     Active Substance: MELOXICAM
  20. PILOCARPINE HCL [Concomitant]
     Active Substance: PILOCARPINE HYDROCHLORIDE
  21. MORPHINE SULF [Concomitant]
     Active Substance: MORPHINE SULFATE
  22. ALLEGRA-D                          /01367401/ [Concomitant]
  23. MORPHINE SULFATE. [Concomitant]
     Active Substance: MORPHINE SULFATE
  24. VALIUM [Concomitant]
     Active Substance: DIAZEPAM
  25. CALCIUM +VIT D [Concomitant]
     Active Substance: CALCIUM\VITAMIN D
  26. ZEGERID                            /00661201/ [Concomitant]
     Active Substance: OMEPRAZOLE
  27. MORPHINE [Concomitant]
     Active Substance: MORPHINE
  28. POTASSIUM CL [Concomitant]
     Active Substance: POTASSIUM CHLORIDE
  29. ROBAXIN-750 [Concomitant]
  30. CLONAZEPAM. [Concomitant]
     Active Substance: CLONAZEPAM
  31. TOPAMAX [Concomitant]
     Active Substance: TOPIRAMATE
  32. CO Q 10                            /00517201/ [Concomitant]
  33. CRESTOR [Concomitant]
     Active Substance: ROSUVASTATIN CALCIUM
  34. HYDROCODONE BITARTRATE AND ACETAMINOPHEN [Concomitant]
     Active Substance: ACETAMINOPHEN\HYDROCODONE BITARTRATE
  35. ZYRTEC [Concomitant]
     Active Substance: CETIRIZINE HYDROCHLORIDE
  36. PROVIGIL [Concomitant]
     Active Substance: MODAFINIL
  37. TIZANIDINE HCL [Concomitant]
     Active Substance: TIZANIDINE HYDROCHLORIDE
  38. PHENAZOPYRIDINE. [Concomitant]
     Active Substance: PHENAZOPYRIDINE
  39. XYREM [Suspect]
     Active Substance: SODIUM OXYBATE
     Dosage: 4.5 G, BID
     Route: 048
     Dates: start: 200804
  40. MAGNESIUM OXIDE HEAVY [Concomitant]
     Active Substance: MAGNESIUM OXIDE
  41. NUVIGIL [Concomitant]
     Active Substance: ARMODAFINIL
  42. NORVASC [Concomitant]
     Active Substance: AMLODIPINE BESYLATE
  43. FLUOXETINE HCL [Concomitant]
     Active Substance: FLUOXETINE HYDROCHLORIDE
  44. CARBIDOPA LEVODOPA [Concomitant]
     Active Substance: CARBIDOPA\LEVODOPA
  45. DICLOFENAC [Concomitant]
     Active Substance: DICLOFENAC
  46. MOBIC [Concomitant]
     Active Substance: MELOXICAM

REACTIONS (3)
  - Depression [Unknown]
  - Hypersensitivity [Unknown]
  - Vitamin D decreased [Unknown]
